FAERS Safety Report 13685461 (Version 2)
Quarter: 2017Q3

REPORT INFORMATION
  Report Type: Report from Study
  Country: US (occurrence: US)
  Receive Date: 20170623
  Receipt Date: 20170706
  Transmission Date: 20171127
  Serious: Yes (Death, Other)
  Sender: FDA-Public Use
  Company Number: US-ACTELION-A-US2017-153923

PATIENT
  Age: 73 Year
  Sex: Female
  Weight: 49.89 kg

DRUGS (2)
  1. VELETRI [Suspect]
     Active Substance: EPOPROSTENOL
     Indication: PULMONARY HYPERTENSION
     Dosage: 10.25 NG/KG, PER MIN
     Route: 042
     Dates: start: 20170316, end: 20170613
  2. VELETRI [Suspect]
     Active Substance: EPOPROSTENOL
     Dosage: 10.27 NG/KG, PER MIN
     Route: 042

REACTIONS (9)
  - Pain in jaw [Unknown]
  - Fluid retention [Unknown]
  - Hepatic failure [Fatal]
  - Flushing [Unknown]
  - Oxygen saturation decreased [Unknown]
  - Dyspnoea exertional [Unknown]
  - Ascites [Unknown]
  - Abdominal pain upper [Unknown]
  - Weight decreased [Unknown]
